FAERS Safety Report 21555930 (Version 2)
Quarter: 2022Q4

REPORT INFORMATION
  Report Type: Report from Study
  Country: US (occurrence: US)
  Receive Date: 20221104
  Receipt Date: 20221116
  Transmission Date: 20230112
  Serious: Yes (Other)
  Sender: FDA-Public Use
  Company Number: US-OTSUKA-2022_050473

PATIENT
  Sex: Male

DRUGS (2)
  1. CEDAZURIDINE\DECITABINE [Suspect]
     Active Substance: CEDAZURIDINE\DECITABINE
     Indication: Illness
     Dosage: 1 DF (35-100MG) ON DAYS 1, 3, AND 5 OF EACH 28 DAY CYCLE
     Route: 048
  2. CEDAZURIDINE\DECITABINE [Suspect]
     Active Substance: CEDAZURIDINE\DECITABINE
     Dosage: UNK, 3 DAYS FOR EVERY 6 WEEKS
     Route: 065

REACTIONS (8)
  - Stem cell transplant [Unknown]
  - Injection site pain [Unknown]
  - Full blood count abnormal [Unknown]
  - Affective disorder [Unknown]
  - Pain [Unknown]
  - Arthralgia [Unknown]
  - Inappropriate schedule of product administration [Unknown]
  - Product use in unapproved indication [Unknown]
